FAERS Safety Report 12877136 (Version 1)
Quarter: 2016Q4

REPORT INFORMATION
  Report Type: Other
  Country: US (occurrence: US)
  Receive Date: 20161024
  Receipt Date: 20161024
  Transmission Date: 20170207
  Serious: Yes (Other)
  Sender: FDA-Public Use
  Company Number: US-COL_24812_2016

PATIENT
  Age: 52 Year
  Sex: Male

DRUGS (2)
  1. COLGATE MAX FRESH CLEAN MINT [Suspect]
     Active Substance: SODIUM FLUORIDE
     Indication: PRODUCT USED FOR UNKNOWN INDICATION
     Dosage: DAB/TWO TIMES A DAY/
     Route: 048
  2. COLGATE MAX FRESH CLEAN MINT [Suspect]
     Active Substance: SODIUM FLUORIDE
     Dosage: DAB/TWO TIMES A DAY/
     Route: 048
     Dates: end: 201609

REACTIONS (4)
  - Vomiting [Recovered/Resolved]
  - Retching [Recovering/Resolving]
  - Type 2 diabetes mellitus [Not Recovered/Not Resolved]
  - Malaise [Recovered/Resolved]

NARRATIVE: CASE EVENT DATE: 2016
